FAERS Safety Report 9318455 (Version 2)
Quarter: 2014Q2

REPORT INFORMATION
  Report Type: Spontaneous
  Country: US (occurrence: US)
  Receive Date: 20130530
  Receipt Date: 20140530
  Transmission Date: 20141212
  Serious: No
  Sender: FDA-Public Use
  Company Number: US-GLAXOSMITHKLINE-A1014631A

PATIENT
  Age: 33 Year
  Sex: Female

DRUGS (1)
  1. VENTOLIN [Suspect]
     Indication: ASTHMA
     Route: 055
     Dates: start: 20121129

REACTIONS (3)
  - Nasopharyngitis [Unknown]
  - Dysphonia [Unknown]
  - Aphonia [Unknown]
